FAERS Safety Report 7840991-X (Version None)
Quarter: 2011Q4

REPORT INFORMATION
  Report Type: 
  Country: None (occurrence: None)
  Receive Date: 20111021
  Receipt Date: 20111021
  Transmission Date: 20120403
  Serious: Yes (Life-Threatening)
  Sender: FDA-Public Use
  Company Number: None

PATIENT
  Age: 63 Year
  Sex: Female
  Weight: 51.7101 kg

DRUGS (1)
  1. MULTI-VITAMINS [Suspect]

REACTIONS (1)
  - MALAISE [None]
